FAERS Safety Report 7513447-1 (Version None)
Quarter: 2011Q2

REPORT INFORMATION
  Report Type: 
  Country: None (occurrence: None)
  Receive Date: 20110531
  Receipt Date: 20110517
  Transmission Date: 20111010
  Serious: Yes (Other)
  Sender: FDA-Public Use
  Company Number: DE-UCBSA-033667

PATIENT
  Age: 56 Year
  Sex: Male

DRUGS (1)
  1. VIMPAT [Suspect]
     Dosage: UNKNOWN DOSE

REACTIONS (1)
  - CIRCULATORY COLLAPSE [None]
